FAERS Safety Report 5748619-X (Version None)
Quarter: 2008Q2

REPORT INFORMATION
  Report Type: 
  Country: None (occurrence: None)
  Receive Date: 20080523
  Receipt Date: 20080519
  Transmission Date: 20081010
  Serious: Yes (Death)
  Sender: FDA-Public Use
  Company Number: FR-PFIZER INC-2008043060

PATIENT
  Sex: Male
  Weight: 72 kg

DRUGS (7)
  1. IRINOTECAN HCL [Suspect]
     Indication: PANCREATIC CARCINOMA METASTATIC
  2. FLUOROURACIL [Suspect]
     Indication: PANCREATIC CARCINOMA METASTATIC
  3. FLUOROURACIL [Suspect]
     Dosage: FREQ:BOLUS
  4. OXALIPLATIN [Suspect]
     Indication: PANCREATIC CARCINOMA METASTATIC
  5. FOLINIC ACID [Suspect]
     Indication: PANCREATIC CARCINOMA METASTATIC
  6. ATROPINE SULFATE [Concomitant]
     Dates: start: 20060518, end: 20060518
  7. ZOPHREN [Concomitant]
     Dates: start: 20060518, end: 20060523

REACTIONS (1)
  - DEATH [None]
